FAERS Safety Report 23673039 (Version 1)
Quarter: 2024Q1

REPORT INFORMATION
  Report Type: Spontaneous
  Country: US (occurrence: US)
  Receive Date: 20240326
  Receipt Date: 20240326
  Transmission Date: 20240410
  Serious: Yes (Hospitalization)
  Sender: FDA-Public Use
  Company Number: US-ULTRAGENYX PHARMACEUTICAL INC.-US-UGX-24-00542

PATIENT
  Sex: Male
  Weight: 17.69 kg

DRUGS (7)
  1. DOJOLVI [Suspect]
     Active Substance: TRIHEPTANOIN
     Indication: Pyruvate carboxylase deficiency
     Dosage: 8 MILLILITER, QID, WITH FOOD OR DRINK BY MOUTH
     Route: 048
  2. TAMSULOSIN HYDROCHLORIDE [Concomitant]
     Active Substance: TAMSULOSIN HYDROCHLORIDE
     Indication: Product used for unknown indication
     Dosage: 0.4 MILLIGRAM
  3. LEVOCARNITINE [Concomitant]
     Active Substance: LEVOCARNITINE
     Indication: Product used for unknown indication
     Dosage: 100 MILLIGRAM PER MILLILITER, SOLUTION
  4. POTASSIUM CITRATE CITRIC ACID [Concomitant]
     Indication: Product used for unknown indication
     Dosage: UNK
  5. IRON [Concomitant]
     Active Substance: IRON
     Indication: Product used for unknown indication
     Dosage: 18 MILLIGRAM, TABLET
  6. LEVOCARNITINE [Concomitant]
     Active Substance: LEVOCARNITINE
     Indication: Product used for unknown indication
     Dosage: 1000- 10/15 LIQUID
  7. VITAMINS [Concomitant]
     Active Substance: VITAMINS
     Indication: Product used for unknown indication
     Dosage: UNK

REACTIONS (2)
  - Adenovirus infection [Unknown]
  - Ear infection [Unknown]
